FAERS Safety Report 7636021-5 (Version None)
Quarter: 2011Q3

REPORT INFORMATION
  Report Type: 
  Country: None (occurrence: None)
  Receive Date: 20110726
  Receipt Date: 20110718
  Transmission Date: 20111222
  Serious: Yes (Hospitalization)
  Sender: FDA-Public Use
  Company Number: US-ROCHE-788061

PATIENT
  Sex: Female
  Weight: 70 kg

DRUGS (4)
  1. LAPATINIB [Suspect]
     Dosage: 1250 MG, QD
     Route: 048
     Dates: start: 20110510, end: 20110525
  2. CAPECITABINE [Suspect]
     Dosage: 1800 MG, BID
     Route: 048
     Dates: start: 20110510, end: 20110524
  3. LAPATINIB [Suspect]
     Indication: BREAST CANCER
     Dosage: 1250 MG, QD
     Route: 048
     Dates: start: 20110510, end: 20110525
  4. CAPECITABINE [Suspect]
     Indication: BREAST CANCER
     Dosage: 1800 MG, BID
     Route: 048
     Dates: start: 20110510, end: 20110524

REACTIONS (1)
  - INTESTINAL OBSTRUCTION [None]
